FAERS Safety Report 10632536 (Version 1)
Quarter: 2014Q4

REPORT INFORMATION
  Report Type: Spontaneous
  Country: US (occurrence: US)
  Receive Date: 20141205
  Receipt Date: 20141205
  Transmission Date: 20150529
  Serious: Yes (Other)
  Sender: FDA-Public Use
  Company Number: US-BRISTOL-MYERS SQUIBB COMPANY-21625942

PATIENT
  Sex: Male

DRUGS (9)
  1. POTASSIUM [Concomitant]
     Active Substance: POTASSIUM
  2. METOPROLOL [Concomitant]
     Active Substance: METOPROLOL
  3. METOLAZONE. [Concomitant]
     Active Substance: METOLAZONE
  4. ECOTRIN [Concomitant]
     Active Substance: ASPIRIN
  5. ELIQUIS [Suspect]
     Active Substance: APIXABAN
     Indication: CEREBROVASCULAR ACCIDENT PROPHYLAXIS
  6. BENEFIBER [Suspect]
     Active Substance: STARCH, WHEAT
     Indication: BOWEL MOVEMENT IRREGULARITY
     Dosage: 1DF: 1 HEAPING TSP (2011-2014)?OCT2014-ONG?POWDER
     Route: 048
     Dates: start: 2011
  7. BENEFIBER [Suspect]
     Active Substance: STARCH, WHEAT
     Indication: FAECES HARD
     Dosage: 1DF: 1 HEAPING TSP (2011-2014)?OCT2014-ONG?POWDER
     Route: 048
     Dates: start: 2011
  8. ALLOPURINOL. [Concomitant]
     Active Substance: ALLOPURINOL
  9. ATORVASTATIN [Concomitant]
     Active Substance: ATORVASTATIN

REACTIONS (1)
  - Gastrointestinal haemorrhage [Recovered/Resolved]

NARRATIVE: CASE EVENT DATE: 2014
